FAERS Safety Report 24822199 (Version 3)
Quarter: 2025Q1

REPORT INFORMATION
  Report Type: Report from Study
  Country: US (occurrence: US)
  Receive Date: 20250108
  Receipt Date: 20250209
  Transmission Date: 20250408
  Serious: No
  Sender: AIMMUNE
  Company Number: US-ZENPEP LLC-2025AIMT00007

PATIENT

DRUGS (8)
  1. ZENPEP [Suspect]
     Active Substance: PANCRELIPASE AMYLASE\PANCRELIPASE LIPASE\PANCRELIPASE PROTEASE
     Indication: Pancreatic failure
     Route: 048
     Dates: start: 202409, end: 202501
  2. ZENPEP [Suspect]
     Active Substance: PANCRELIPASE AMYLASE\PANCRELIPASE LIPASE\PANCRELIPASE PROTEASE
     Route: 048
  3. TRAZODONE [Concomitant]
     Active Substance: TRAZODONE HYDROCHLORIDE
     Indication: Sleep disorder
  4. TYLENOL [Concomitant]
     Active Substance: ACETAMINOPHEN
     Indication: Rheumatoid arthritis
  5. TYLENOL [Concomitant]
     Active Substance: ACETAMINOPHEN
     Indication: Osteoarthritis
  6. ASPIRIN [Concomitant]
     Active Substance: ASPIRIN
     Indication: Deep vein thrombosis
  7. OXYCONTIN [Concomitant]
     Active Substance: OXYCODONE HYDROCHLORIDE
     Indication: Product used for unknown indication
  8. MARINOL [Concomitant]
     Active Substance: DRONABINOL
     Indication: Appetite disorder

REACTIONS (1)
  - Diarrhoea [Unknown]
